FAERS Safety Report 5285782-1 (Version None)
Quarter: 2007Q1

REPORT INFORMATION
  Report Type: 
  Country: None (occurrence: None)
  Receive Date: 20070126
  Receipt Date: 20061120
  Transmission Date: 20070707
  Serious: No
  Sender: FDA-Public Use
  Company Number: 2006CT001010

PATIENT
  Age: 58 Year
  Sex: Female
  Weight: 99.8 kg

DRUGS (6)
  1. VENTAVIS [Suspect]
     Indication: PULMONARY HYPERTENSION
     Dosage: 5 UG;6TO9X/DAY;INH
     Route: 055
     Dates: start: 20061016
  2. WARFARIN SODIUM [Concomitant]
  3. K-DUR 10 [Concomitant]
  4. CARDIAZEM [Concomitant]
  5. LASIX [Concomitant]
  6. OXYGEN [Concomitant]

REACTIONS (1)
  - ORAL DISCOMFORT [None]
